FAERS Safety Report 8842724 (Version 2)
Quarter: 2012Q4

REPORT INFORMATION
  Report Type: 
  Country: AT (occurrence: AT)
  Receive Date: 20121016
  Receipt Date: 20121114
  Transmission Date: 20130627
  Serious: Yes (Other)
  Sender: FDA-Public Use
  Company Number: AT-B.I. PHARMACEUTICALS,INC./RIDGEFIELD-2012-AP-00848AP

PATIENT
  Age: 78 Year
  Sex: Male
  Weight: 72 kg

DRUGS (4)
  1. PRADAXA [Suspect]
     Indication: ATRIAL FIBRILLATION
     Dosage: 220 mg
     Route: 048
     Dates: start: 201207, end: 20120926
  2. PRADAXA [Suspect]
     Indication: HYPERTENSION
  3. UNSPECIFIED INGREDIENT [Suspect]
     Dosage: 5/25mg
  4. AMLODIPIN [Concomitant]
     Dosage: 5 mg

REACTIONS (5)
  - Oesophageal ulcer [Recovered/Resolved]
  - Oesophagitis [Recovered/Resolved]
  - Eosinophilic oesophagitis [Recovered/Resolved]
  - Rash generalised [Recovered/Resolved]
  - Pruritus generalised [Recovered/Resolved]
